FAERS Safety Report 10686253 (Version 5)
Quarter: 2015Q3

REPORT INFORMATION
  Report Type: Spontaneous
  Country: US (occurrence: US)
  Receive Date: 20141231
  Receipt Date: 20150911
  Transmission Date: 20151125
  Serious: Yes (Disabling, Other)
  Sender: FDA-Public Use
  Company Number: US-009507513-1204USA03745

PATIENT
  Sex: Male
  Weight: 85.26 kg

DRUGS (2)
  1. PROPECIA [Suspect]
     Active Substance: FINASTERIDE
     Indication: ALOPECIA
     Dosage: 1 MG, QD
     Route: 048
     Dates: start: 20070906, end: 20121129
  2. PROPECIA [Suspect]
     Active Substance: FINASTERIDE
     Dosage: 1 MG, QOD
     Route: 048
     Dates: start: 20100630

REACTIONS (31)
  - Asthenospermia [Unknown]
  - Testicular atrophy [Not Recovered/Not Resolved]
  - Neck pain [Unknown]
  - Sexual dysfunction [Not Recovered/Not Resolved]
  - Intervertebral disc protrusion [Unknown]
  - Myalgia [Unknown]
  - Anxiety [Not Recovered/Not Resolved]
  - Erectile dysfunction [Not Recovered/Not Resolved]
  - Depression [Not Recovered/Not Resolved]
  - Hypogonadism male [Unknown]
  - Azoospermia [Not Recovered/Not Resolved]
  - Mass [Unknown]
  - Androgen deficiency [Unknown]
  - Teratospermia [Unknown]
  - Intervertebral disc degeneration [Unknown]
  - Cervical radiculopathy [Unknown]
  - Ejaculation disorder [Not Recovered/Not Resolved]
  - Oligospermia [Unknown]
  - Infertility male [Not Recovered/Not Resolved]
  - Rectal cancer [Not Recovered/Not Resolved]
  - Ejaculation failure [Not Recovered/Not Resolved]
  - Botulinum toxin injection [Unknown]
  - Cognitive disorder [Not Recovered/Not Resolved]
  - Libido decreased [Not Recovered/Not Resolved]
  - Varicocele [Not Recovered/Not Resolved]
  - Cervical spinal stenosis [Unknown]
  - Stress [Unknown]
  - Simplex virus test positive [Unknown]
  - Onychomycosis [Unknown]
  - Loss of libido [Unknown]
  - Sertoli-cell-only syndrome [Unknown]

NARRATIVE: CASE EVENT DATE: 20081121
